FAERS Safety Report 9450099 (Version 1)
Quarter: 2013Q3

REPORT INFORMATION
  Report Type: Spontaneous
  Country: US (occurrence: US)
  Receive Date: 20130809
  Receipt Date: 20130809
  Transmission Date: 20140515
  Serious: No
  Sender: FDA-Public Use
  Company Number: US-AMGEN-USASP2013007914

PATIENT
  Age: 60 Year
  Sex: Male
  Weight: 132.4 kg

DRUGS (1)
  1. NPLATE [Suspect]
     Indication: IMMUNE THROMBOCYTOPENIC PURPURA
     Dosage: 100 MUG, UNK
     Route: 065
     Dates: start: 201212

REACTIONS (1)
  - Headache [Recovered/Resolved]
